FAERS Safety Report 25120945 (Version 1)
Quarter: 2025Q1

REPORT INFORMATION
  Report Type: Spontaneous
  Country: CN (occurrence: CN)
  Receive Date: 20250326
  Receipt Date: 20250326
  Transmission Date: 20250408
  Serious: Yes (Hospitalization, Other)
  Sender: ASTELLAS
  Company Number: CN-ASTELLAS-2025-AER-016493

PATIENT
  Age: 61 Year
  Sex: Male

DRUGS (7)
  1. TACROLIMUS [Interacting]
     Active Substance: TACROLIMUS
     Indication: Renal transplant
     Route: 065
     Dates: end: 202301
  2. ISAVUCONAZOLE [Interacting]
     Active Substance: ISAVUCONAZOLE
     Indication: Pulmonary mucormycosis
     Dosage: FOR THE FIRST 48 HOURS
     Route: 048
     Dates: start: 202301, end: 202301
  3. ISAVUCONAZOLE [Interacting]
     Active Substance: ISAVUCONAZOLE
     Dosage: FROM DAY 3 TO DAY 14
     Route: 048
     Dates: start: 202301, end: 202301
  4. ISAVUCONAZOLE [Interacting]
     Active Substance: ISAVUCONAZOLE
     Route: 048
     Dates: start: 202301, end: 202304
  5. PREDNISONE [Concomitant]
     Active Substance: PREDNISONE
     Indication: Renal transplant
     Route: 065
     Dates: end: 202301
  6. MYCOPHENOLATE MOFETIL [Concomitant]
     Active Substance: MYCOPHENOLATE MOFETIL
     Indication: Renal transplant
     Route: 065
     Dates: end: 202301
  7. INSULIN NOS [Concomitant]
     Active Substance: INSULIN NOS
     Indication: Diabetes mellitus
     Route: 065

REACTIONS (7)
  - COVID-19 [Recovered/Resolved]
  - Pulmonary mucormycosis [Recovered/Resolved]
  - Respiratory moniliasis [Unknown]
  - Acinetobacter infection [Unknown]
  - Stenotrophomonas infection [Unknown]
  - Cytomegalovirus infection [Unknown]
  - Drug interaction [Unknown]

NARRATIVE: CASE EVENT DATE: 20221201
